FAERS Safety Report 25516645 (Version 1)
Quarter: 2025Q3

REPORT INFORMATION
  Report Type: Spontaneous
  Country: US (occurrence: US)
  Receive Date: 20250704
  Receipt Date: 20250704
  Transmission Date: 20251020
  Serious: No
  Sender: INNOGENIX, LLC
  Company Number: US-Innogenix, LLC-2179922

PATIENT

DRUGS (1)
  1. PROPRANOLOL HYDROCHLORIDE [Suspect]
     Active Substance: PROPRANOLOL HYDROCHLORIDE
     Indication: Palpitations

REACTIONS (1)
  - Feeling abnormal [Unknown]
